FAERS Safety Report 17472844 (Version 1)
Quarter: 2020Q1

REPORT INFORMATION
  Report Type: Spontaneous
  Country: US (occurrence: US)
  Receive Date: 20200217
  Receipt Date: 20200217
  Transmission Date: 20200409
  Serious: No
  Sender: FDA-Public Use
  Company Number: None

PATIENT
  Age: 60 Year
  Sex: Male
  Weight: 65.32 kg

DRUGS (1)
  1. HALOPERIDOL (HALOPERIDOL 5MG TAB, UD) [Suspect]
     Active Substance: HALOPERIDOL
     Indication: SCHIZOAFFECTIVE DISORDER
     Route: 048
     Dates: start: 20190508, end: 20190509

REACTIONS (6)
  - Psychotic disorder [None]
  - Muscle rigidity [None]
  - Tremor [None]
  - Cogwheel rigidity [None]
  - Reduced facial expression [None]
  - Agitation [None]

NARRATIVE: CASE EVENT DATE: 20190509
